FAERS Safety Report 21838560 (Version 8)
Quarter: 2025Q1

REPORT INFORMATION
  Report Type: Report from Study
  Country: CA (occurrence: CA)
  Receive Date: 20230109
  Receipt Date: 20250224
  Transmission Date: 20250408
  Serious: Yes (Hospitalization, Other)
  Sender: TAKEDA
  Company Number: CA-TAKEDA-2023TUS001739

PATIENT
  Age: 62 Year
  Sex: Female

DRUGS (6)
  1. VEDOLIZUMAB [Suspect]
     Active Substance: VEDOLIZUMAB
     Indication: Crohn^s disease
  2. VEDOLIZUMAB [Suspect]
     Active Substance: VEDOLIZUMAB
  3. VEDOLIZUMAB [Suspect]
     Active Substance: VEDOLIZUMAB
  4. VEDOLIZUMAB [Suspect]
     Active Substance: VEDOLIZUMAB
     Dosage: 300 MILLIGRAM, Q4WEEKS
     Dates: start: 20250219
  5. XELODA [Suspect]
     Active Substance: CAPECITABINE
     Indication: Product used for unknown indication
     Dosage: UNK UNK, Q2WEEKS
     Dates: end: 20230226
  6. STELARA [Concomitant]
     Active Substance: USTEKINUMAB

REACTIONS (21)
  - Gallbladder cancer [Unknown]
  - Diarrhoea [Recovered/Resolved]
  - Mouth ulceration [Recovered/Resolved]
  - Palmar-plantar erythrodysaesthesia syndrome [Recovered/Resolved]
  - Pericarditis [Recovered/Resolved]
  - Pancreatitis [Recovered/Resolved]
  - Uveitis [Unknown]
  - Colitis [Unknown]
  - Crohn^s disease [Unknown]
  - Hepatic cancer [Unknown]
  - Abdominal pain [Unknown]
  - Vomiting [Recovered/Resolved]
  - Nausea [Recovered/Resolved]
  - Oral fungal infection [Unknown]
  - Malaise [Unknown]
  - Fistula [Unknown]
  - Off label use [Unknown]
  - Acne [Unknown]
  - Anal fissure [Unknown]
  - Arthralgia [Unknown]
  - Pruritus [Unknown]

NARRATIVE: CASE EVENT DATE: 20221026
